FAERS Safety Report 7420559-X (Version None)
Quarter: 2011Q2

REPORT INFORMATION
  Report Type: 
  Country: None (occurrence: None)
  Receive Date: 20110418
  Receipt Date: 20110413
  Transmission Date: 20111010
  Serious: No
  Sender: FDA-Public Use
  Company Number: US-PFIZER INC-2011081647

PATIENT
  Sex: Male
  Weight: 86.168 kg

DRUGS (1)
  1. ADVIL PM [Suspect]
     Indication: HEADACHE
     Dosage: UNK
     Dates: start: 20110401

REACTIONS (1)
  - EJACULATION DISORDER [None]
